FAERS Safety Report 5859969-0 (Version None)
Quarter: 2008Q3

REPORT INFORMATION
  Report Type: 
  Country: None (occurrence: None)
  Receive Date: 20080827
  Receipt Date: 20080825
  Transmission Date: 20090109
  Serious: Yes (Hospitalization)
  Sender: FDA-Public Use
  Company Number: FI-ASTRAZENECA-2008SE04015

PATIENT
  Sex: Female

DRUGS (1)
  1. SYMBICORT TBH [Suspect]
     Dosage: THE WHOLE SYMBICORT DEVICE (APPROXIMATELY 120 DOSES)
     Route: 055

REACTIONS (2)
  - OVERDOSE [None]
  - PSYCHOTIC DISORDER [None]
